FAERS Safety Report 7180090-6 (Version None)
Quarter: 2010Q4

REPORT INFORMATION
  Report Type: 
  Country: None (occurrence: None)
  Receive Date: 20101221
  Receipt Date: 20101217
  Transmission Date: 20110411
  Serious: Yes (Hospitalization, Other)
  Sender: FDA-Public Use
  Company Number: US-PFIZER INC-2010174929

PATIENT
  Sex: Female

DRUGS (1)
  1. TYGACIL [Suspect]
     Indication: PNEUMONIA
     Dosage: UNK
     Dates: start: 20101101, end: 20101216

REACTIONS (3)
  - ILL-DEFINED DISORDER [None]
  - LIPASE INCREASED [None]
  - PANCREATITIS [None]
